FAERS Safety Report 13684741 (Version 2)
Quarter: 2017Q3

REPORT INFORMATION
  Report Type: Report from Study
  Country: US (occurrence: US)
  Receive Date: 20170623
  Receipt Date: 20170816
  Transmission Date: 20171127
  Serious: Yes (Hospitalization, Other)
  Sender: FDA-Public Use
  Company Number: US-BAYER-2016-226950

PATIENT
  Age: 84 Year
  Sex: Female
  Weight: 108.39 kg

DRUGS (10)
  1. DILTIAZEM. [Concomitant]
     Active Substance: DILTIAZEM
     Dosage: UNK
  2. ADEMPAS [Suspect]
     Active Substance: RIOCIGUAT
     Indication: PULMONARY ARTERIAL HYPERTENSION
     Dosage: 2 MG, TID
     Route: 048
     Dates: end: 20170613
  3. APIXABAN [Concomitant]
     Active Substance: APIXABAN
     Dosage: UNK
  4. ADEMPAS [Suspect]
     Active Substance: RIOCIGUAT
     Indication: PULMONARY ARTERIAL HYPERTENSION
     Dosage: 1.5 MG, TID
     Route: 048
  5. XARELTO [Suspect]
     Active Substance: RIVAROXABAN
     Dosage: UNK
     Route: 048
  6. ADEMPAS [Suspect]
     Active Substance: RIOCIGUAT
     Indication: PULMONARY ARTERIAL HYPERTENSION
     Dosage: 2 MG, TID
  7. ADEMPAS [Suspect]
     Active Substance: RIOCIGUAT
     Indication: PULMONARY ARTERIAL HYPERTENSION
     Dosage: UNK
     Dates: start: 20151029
  8. ADEMPAS [Suspect]
     Active Substance: RIOCIGUAT
     Indication: PULMONARY ARTERIAL HYPERTENSION
     Dosage: 1.5 MG, TID
     Route: 048
  9. ADEMPAS [Suspect]
     Active Substance: RIOCIGUAT
     Indication: PULMONARY ARTERIAL HYPERTENSION
     Dosage: 2.0 MG, TID
     Route: 048
  10. MIRABEGRON [Concomitant]
     Active Substance: MIRABEGRON
     Dosage: UNK UNK, QD

REACTIONS (25)
  - Headache [None]
  - Nocturnal dyspnoea [None]
  - Memory impairment [Unknown]
  - Oedema [Unknown]
  - Back pain [Unknown]
  - Back pain [None]
  - Musculoskeletal pain [Unknown]
  - Blood pressure systolic decreased [Unknown]
  - Oxygen saturation decreased [None]
  - Adverse drug reaction [None]
  - Somnolence [None]
  - Chest discomfort [Unknown]
  - Dyspnoea exertional [Unknown]
  - Weight increased [Unknown]
  - Rash pruritic [Recovering/Resolving]
  - Blood urine present [Unknown]
  - Chest pain [None]
  - Weight decreased [Unknown]
  - Headache [Unknown]
  - Rash [Unknown]
  - Hospitalisation [Unknown]
  - Somnolence [Unknown]
  - Dysuria [Unknown]
  - Depression [Unknown]
  - Decreased appetite [Unknown]

NARRATIVE: CASE EVENT DATE: 20170110
